FAERS Safety Report 17352877 (Version 1)
Quarter: 2020Q1

REPORT INFORMATION
  Report Type: Spontaneous
  Country: CA (occurrence: CA)
  Receive Date: 20200131
  Receipt Date: 20200131
  Transmission Date: 20200409
  Serious: Yes (Other)
  Sender: FDA-Public Use
  Company Number: CA-ORION CORPORATION ORION PHARMA-TREX2020-0568

PATIENT
  Age: 71 Year
  Sex: Female

DRUGS (13)
  1. ENBREL [Suspect]
     Active Substance: ETANERCEPT
     Indication: RHEUMATOID ARTHRITIS
     Route: 065
  2. ORENCIA [Suspect]
     Active Substance: ABATACEPT
     Indication: PRODUCT USED FOR UNKNOWN INDICATION
     Route: 042
  3. PLAQUENIL [Suspect]
     Active Substance: HYDROXYCHLOROQUINE SULFATE
     Indication: PRODUCT USED FOR UNKNOWN INDICATION
     Route: 065
  4. SULFASALAZINE. [Suspect]
     Active Substance: SULFASALAZINE
     Indication: RHEUMATOID ARTHRITIS
     Route: 048
  5. LEUCOVORIN CALCIUM. [Concomitant]
     Active Substance: LEUCOVORIN CALCIUM
     Route: 065
  6. METHOTREXATE (TRADE NAME UNKNOWN) [Suspect]
     Active Substance: METHOTREXATE
     Indication: RHEUMATOID ARTHRITIS
     Route: 048
  7. METHOTREXATE (TRADE NAME UNKNOWN) [Suspect]
     Active Substance: METHOTREXATE
     Route: 048
  8. HUMIRA [Suspect]
     Active Substance: ADALIMUMAB
     Indication: PRODUCT USED FOR UNKNOWN INDICATION
     Route: 058
  9. ARAVA [Suspect]
     Active Substance: LEFLUNOMIDE
     Indication: PRODUCT USED FOR UNKNOWN INDICATION
     Route: 048
  10. CIMZIA [Suspect]
     Active Substance: CERTOLIZUMAB PEGOL
     Indication: PRODUCT USED FOR UNKNOWN INDICATION
     Route: 058
  11. COVERSYL [Concomitant]
     Active Substance: PERINDOPRIL
     Route: 065
  12. ERGOCALCIFEROL. [Concomitant]
     Active Substance: ERGOCALCIFEROL
     Route: 065
  13. METHOTREXATE (TRADE NAME UNKNOWN) [Suspect]
     Active Substance: METHOTREXATE
     Route: 048

REACTIONS (16)
  - Joint swelling [Unknown]
  - Nausea [Unknown]
  - Affect lability [Unknown]
  - Finger deformity [Unknown]
  - Limb discomfort [Unknown]
  - Blood pressure fluctuation [Unknown]
  - Depression [Unknown]
  - Night sweats [Unknown]
  - Hyperhidrosis [Unknown]
  - Osteoarthritis [Unknown]
  - Palpitations [Unknown]
  - Anxiety [Unknown]
  - Drug ineffective [Unknown]
  - Contraindicated product administered [Unknown]
  - Headache [Unknown]
  - Drug intolerance [Unknown]
